FAERS Safety Report 18474777 (Version 1)
Quarter: 2020Q4

REPORT INFORMATION
  Report Type: Spontaneous
  Country: GB (occurrence: GB)
  Receive Date: 20201106
  Receipt Date: 20201106
  Transmission Date: 20210114
  Serious: Yes (Hospitalization)
  Sender: FDA-Public Use
  Company Number: GB-VERTEX PHARMACEUTICALS-2020-021616

PATIENT
  Age: 22 Year
  Sex: Female
  Weight: 54 kg

DRUGS (11)
  1. CREON [Concomitant]
     Active Substance: PANCRELIPASE AMYLASE\PANCRELIPASE LIPASE\PANCRELIPASE PROTEASE
  2. KAFTRIO [Suspect]
     Active Substance: ELEXACAFTOR\IVACAFTOR\TEZACAFTOR
     Indication: CYSTIC FIBROSIS
     Dosage: 2 DOSAGE FORM, IN THE MORNING
     Route: 048
     Dates: start: 20200917, end: 20200924
  3. URSODEOXYCHOLIC ACID [Concomitant]
     Active Substance: URSODIOL
  4. KALYDECO [Suspect]
     Active Substance: IVACAFTOR
     Indication: CYSTIC FIBROSIS
     Dosage: AT NIGHT
     Route: 048
     Dates: start: 20200917, end: 20200924
  5. CEFTAZIDIME. [Concomitant]
     Active Substance: CEFTAZIDIME
     Dosage: 6G, QD FOR 14 DAYS
     Route: 042
     Dates: start: 20200526
  6. LAXIDO [Concomitant]
     Active Substance: POLYETHYLENE GLYCOL 3350\POTASSIUM CHLORIDE\SODIUM BICARBONATE\SODIUM CHLORIDE
  7. LEVETIRACETAM. [Concomitant]
     Active Substance: LEVETIRACETAM
  8. SALBUTAMOL [Concomitant]
     Active Substance: ALBUTEROL
  9. OMEPRAZOLE. [Concomitant]
     Active Substance: OMEPRAZOLE
  10. COLOMYCIN [Concomitant]
     Dosage: 2MU, TID FOR 14 DAYS
     Route: 042
     Dates: start: 20200526
  11. NASONEX [Concomitant]
     Active Substance: MOMETASONE FUROATE

REACTIONS (12)
  - Pancreatic atrophy [Unknown]
  - Liver tenderness [Unknown]
  - Vomiting [Unknown]
  - Fibrosis [Unknown]
  - Hepatic steatosis [Not Recovered/Not Resolved]
  - Pallor [Unknown]
  - Hepatomegaly [Unknown]
  - Chromaturia [Unknown]
  - Abdominal pain [Unknown]
  - Cholestasis [Unknown]
  - Liver function test abnormal [Unknown]
  - Nausea [Unknown]

NARRATIVE: CASE EVENT DATE: 2020
